FAERS Safety Report 18660786 (Version 1)
Quarter: 2020Q4

REPORT INFORMATION
  Report Type: Spontaneous
  Country: US (occurrence: US)
  Receive Date: 20201223
  Receipt Date: 20201223
  Transmission Date: 20210114
  Serious: No
  Sender: FDA-Public Use
  Company Number: None

PATIENT
  Age: 38 Year
  Sex: Male

DRUGS (2)
  1. KENALOG [Suspect]
     Active Substance: TRIAMCINOLONE ACETONIDE
     Indication: ARTHRALGIA
     Dates: start: 20200728
  2. LIDOCAINE 1% [Suspect]
     Active Substance: LIDOCAINE

REACTIONS (2)
  - Injection site discolouration [None]
  - Fungal infection [None]

NARRATIVE: CASE EVENT DATE: 20200728
